FAERS Safety Report 4381503-5 (Version None)
Quarter: 2004Q2

REPORT INFORMATION
  Report Type: 
  Country: None (occurrence: None)
  Receive Date: 20040615
  Receipt Date: 20040602
  Transmission Date: 20050107
  Serious: Yes (Other)
  Sender: FDA-Public Use
  Company Number: US-SHR-04-020131

PATIENT
  Sex: Female

DRUGS (6)
  1. BETASERON [Suspect]
     Indication: MULTIPLE SCLEROSIS
     Dosage: 8 MIU, EVERY 2D, SUBCUTANEOUS
     Route: 058
     Dates: start: 19980101, end: 20040201
  2. DARVOCET-N (DEXTROPROPOXYPHENE NAPSILATE) [Concomitant]
  3. PERCODAN (PHENACETIN, OXYCODONE TEREPHTHALATE, OXYCODONE HYDROCHLORIDE [Concomitant]
  4. TEREPHTHALATE, ACETYLSALICYLIC ACID) [Concomitant]
  5. LEVAQUIN [Concomitant]
  6. PAMELOR [Concomitant]

REACTIONS (6)
  - CONDITION AGGRAVATED [None]
  - GANGRENE [None]
  - HEMIPARESIS [None]
  - SYSTEMIC LUPUS ERYTHEMATOSUS [None]
  - TREATMENT NONCOMPLIANCE [None]
  - VASCULITIS [None]
